FAERS Safety Report 14355047 (Version 4)
Quarter: 2018Q1

REPORT INFORMATION
  Report Type: Spontaneous
  Country: US (occurrence: US)
  Receive Date: 20180105
  Receipt Date: 20180315
  Transmission Date: 20180509
  Serious: Yes (Death, Hospitalization, Other)
  Sender: FDA-Public Use
  Company Number: US-PFIZER INC-2018005133

PATIENT
  Age: 71 Year
  Sex: Female
  Weight: 61.68 kg

DRUGS (4)
  1. LINZESS [Concomitant]
     Active Substance: LINACLOTIDE
     Dosage: UNK
     Dates: start: 2015
  2. IBRANCE [Suspect]
     Active Substance: PALBOCICLIB
     Dosage: 75 MG, CYCLIC, (ONCE A DAY FOR 21 DAYS AND THEN OFF FOR 7 DAYS)
     Route: 048
  3. IBRANCE [Suspect]
     Active Substance: PALBOCICLIB
     Indication: BREAST CANCER
     Dosage: 75 MG, DAILY
     Route: 048
     Dates: start: 2015
  4. IBRANCE [Suspect]
     Active Substance: PALBOCICLIB
     Dosage: UNK
     Dates: start: 20171229, end: 20180107

REACTIONS (9)
  - Atrial fibrillation [Unknown]
  - Oedema [Recovering/Resolving]
  - Haemoglobin decreased [Unknown]
  - Sepsis [Unknown]
  - Dyspnoea [Unknown]
  - Death [Fatal]
  - Weight increased [Unknown]
  - Pneumonia [Recovering/Resolving]
  - Vein disorder [Unknown]

NARRATIVE: CASE EVENT DATE: 20180102
